FAERS Safety Report 5497381-7 (Version None)
Quarter: 2007Q4

REPORT INFORMATION
  Report Type: 
  Country: None (occurrence: None)
  Receive Date: 20071025
  Receipt Date: 20061127
  Transmission Date: 20080405
  Serious: No
  Sender: FDA-Public Use
  Company Number: US-BRISTOL-MYERS SQUIBB COMPANY-13592910

PATIENT
  Age: 35 Year
  Sex: Female
  Weight: 106 kg

DRUGS (3)
  1. METFORMIN HCL [Suspect]
     Indication: DIABETES MELLITUS
     Route: 048
     Dates: start: 20061103
  2. LISINOPRIL [Concomitant]
  3. CORTEF [Concomitant]

REACTIONS (2)
  - DIARRHOEA [None]
  - NAUSEA [None]
